FAERS Safety Report 6430395-9 (Version None)
Quarter: 2009Q4

REPORT INFORMATION
  Report Type: 
  Country: None (occurrence: None)
  Receive Date: 20091106
  Receipt Date: 20091027
  Transmission Date: 20100525
  Serious: Yes (Other)
  Sender: FDA-Public Use
  Company Number: BR-PFIZER INC-2009242524

PATIENT
  Sex: Female

DRUGS (1)
  1. CHAMPIX [Suspect]
     Indication: SMOKING CESSATION THERAPY
     Dosage: UNK
     Route: 048
     Dates: start: 20090401, end: 20090601

REACTIONS (7)
  - DRY MOUTH [None]
  - IRRITABILITY [None]
  - KIDNEY INFECTION [None]
  - MALAISE [None]
  - PAIN [None]
  - SOMNOLENCE [None]
  - SUICIDAL IDEATION [None]
